FAERS Safety Report 6791201-6 (Version None)
Quarter: 2010Q2

REPORT INFORMATION
  Report Type: 
  Country: None (occurrence: None)
  Receive Date: 20100624
  Receipt Date: 20100618
  Transmission Date: 20101027
  Serious: Yes (Hospitalization)
  Sender: FDA-Public Use
  Company Number: US-ASTRAZENECA-2010SE28599

PATIENT

DRUGS (14)
  1. SEROQUEL [Suspect]
     Dosage: 1600MGS TO 2000MGS
     Route: 048
  2. HCTZ [Concomitant]
  3. GABAPENTIN [Concomitant]
  4. VENLAFAXINE [Concomitant]
  5. TRAMADOL HCL [Concomitant]
  6. SIMVASTATIN [Concomitant]
  7. METFORMIN HCL [Concomitant]
  8. OMEPRAZOLE [Concomitant]
  9. AMLODIPINE [Concomitant]
  10. LOSARTAN [Concomitant]
  11. VICODIN [Concomitant]
  12. DICLOFENAC [Concomitant]
  13. LANTUS [Concomitant]
  14. INSULIN [Concomitant]

REACTIONS (1)
  - BLOOD POTASSIUM INCREASED [None]
